FAERS Safety Report 4377512-2 (Version None)
Quarter: 2004Q2

REPORT INFORMATION
  Report Type: 
  Country: None (occurrence: None)
  Receive Date: 20040609
  Receipt Date: 20040512
  Transmission Date: 20050107
  Serious: No
  Sender: FDA-Public Use
  Company Number: 2004213603US

PATIENT
  Age: 67 Year
  Sex: Female

DRUGS (3)
  1. BEXTRA [Suspect]
     Indication: ARTHRITIS
     Dosage: 20 MG, QD
     Dates: start: 20040511, end: 20040511
  2. HYDROCODONE [Concomitant]
  3. LISINOPRIL [Concomitant]

REACTIONS (3)
  - DYSPEPSIA [None]
  - OESOPHAGEAL DISORDER [None]
  - VOMITING [None]
